FAERS Safety Report 8295703-5 (Version None)
Quarter: 2012Q2

REPORT INFORMATION
  Report Type: 
  Country: None (occurrence: None)
  Receive Date: 20120416
  Receipt Date: 20120416
  Transmission Date: 20120825
  Serious: Yes (Disabling)
  Sender: FDA-Public Use
  Company Number: None

PATIENT
  Sex: Male
  Weight: 68.0396 kg

DRUGS (1)
  1. CRESTOR [Suspect]
     Indication: BLOOD CHOLESTEROL INCREASED
     Dosage: 10 MG 1 DAILY
     Dates: start: 20091001, end: 20120319

REACTIONS (4)
  - DRUG HYPERSENSITIVITY [None]
  - LABORATORY TEST ABNORMAL [None]
  - ASTHENIA [None]
  - ARTHRALGIA [None]
